FAERS Safety Report 9921113 (Version 1)
Quarter: 2014Q1

REPORT INFORMATION
  Report Type: Report from Study
  Country: US (occurrence: US)
  Receive Date: 20140225
  Receipt Date: 20140225
  Transmission Date: 20141002
  Serious: No
  Sender: FDA-Public Use
  Company Number: US-JNJFOC-20140210308

PATIENT
  Sex: Female

DRUGS (8)
  1. DURAGESIC [Suspect]
     Indication: GLOSSODYNIA
     Dosage: 2 PATCHES  OF 100 UG/HR
     Route: 060
  2. AMBIEN CR [Concomitant]
     Route: 065
  3. LORAZEPAM [Concomitant]
     Route: 065
  4. MIRALAX [Concomitant]
     Dosage: 17 GRAMS IN 12-16 OZ OF FLUID ONCE A DAY WITH TITRATION
     Route: 065
  5. MAGIC MOUTHWASH [Concomitant]
     Route: 065
  6. LIDOCAINE [Concomitant]
     Route: 065
  7. OXYCODONE [Concomitant]
     Dosage: 20 MG 1-2 TABLET
     Route: 065
  8. BENADRYL [Concomitant]
     Dosage: SWISH, GARGLE AND SWALLOW 4-6 TIMES PER DAY
     Route: 065

REACTIONS (2)
  - Drug administered at inappropriate site [Unknown]
  - Off label use [Unknown]
